FAERS Safety Report 10755908 (Version 1)
Quarter: 2015Q1

REPORT INFORMATION
  Report Type: Spontaneous
  Country: US (occurrence: US)
  Receive Date: 20150202
  Receipt Date: 20150202
  Transmission Date: 20150721
  Serious: No
  Sender: FDA-Public Use
  Company Number: US-MALLINCKRODT-T201402228

PATIENT
  Age: 10 Year
  Sex: Male

DRUGS (1)
  1. OPTIMARK [Suspect]
     Active Substance: GADOVERSETAMIDE
     Indication: IMAGING PROCEDURE
     Dosage: 4 ML, SINGLE
     Route: 065
     Dates: start: 20140515, end: 20140515

REACTIONS (1)
  - Expired product administered [Unknown]

NARRATIVE: CASE EVENT DATE: 20140515
